FAERS Safety Report 8048107-4 (Version None)
Quarter: 2012Q1

REPORT INFORMATION
  Report Type: 
  Country: None (occurrence: None)
  Receive Date: 20120112
  Receipt Date: 20120112
  Transmission Date: 20120608
  Serious: Yes (Other)
  Sender: FDA-Public Use
  Company Number: None

PATIENT
  Age: 47 Year
  Sex: Female
  Weight: 89 kg

DRUGS (1)
  1. NTG AGELESS INTENSIVES ANTI-WRINKLE DEEP WRINKLE FILLER [Suspect]
     Indication: SKIN WRINKLING
     Dosage: NICKEL SIZE, ONCE, TOPICAL
     Route: 061
     Dates: start: 20111227, end: 20111227

REACTIONS (3)
  - ERYTHEMA [None]
  - URTICARIA [None]
  - PRURITUS [None]
